FAERS Safety Report 9785480 (Version 1)
Quarter: 2013Q4

REPORT INFORMATION
  Report Type: Spontaneous
  Country: DK (occurrence: None)
  Receive Date: 20131224
  Receipt Date: 20131224
  Transmission Date: 20140711
  Serious: Yes (Hospitalization)
  Sender: FDA-Public Use
  Company Number: ABR_01358_2013

PATIENT
  Age: 18 Year
  Sex: Female

DRUGS (1)
  1. ABBOTICIN [Suspect]
     Indication: SKIN INFECTION
     Route: 048
     Dates: end: 20130113

REACTIONS (1)
  - Unevaluable event [None]
